FAERS Safety Report 24918407 (Version 2)
Quarter: 2025Q1

REPORT INFORMATION
  Report Type: Spontaneous
  Country: FR (occurrence: FR)
  Receive Date: 20250203
  Receipt Date: 20250204
  Transmission Date: 20250409
  Serious: No
  Sender: MERCK
  Company Number: FR-009507513-2501FRA006184

PATIENT
  Sex: Female

DRUGS (1)
  1. LETERMOVIR [Suspect]
     Active Substance: LETERMOVIR
     Indication: Antiviral prophylaxis
     Dosage: 480 MILLIGRAM, QD
     Route: 048
     Dates: start: 20241213

REACTIONS (3)
  - Drug resistance [Unknown]
  - Viral load increased [Unknown]
  - Off label use [Unknown]

NARRATIVE: CASE EVENT DATE: 20241213
